FAERS Safety Report 13392891 (Version 1)
Quarter: 2017Q1

REPORT INFORMATION
  Report Type: Spontaneous
  Country: US (occurrence: US)
  Receive Date: 20170331
  Receipt Date: 20170331
  Transmission Date: 20170429
  Serious: No
  Sender: FDA-Public Use
  Company Number: US-MYLANLABS-2017M1004983

PATIENT
  Age: 68 Year
  Sex: Female
  Weight: 72.56 kg

DRUGS (2)
  1. FENTANYL TRANSDERMAL SYSTEM [Suspect]
     Active Substance: FENTANYL
     Indication: BONE PAIN
     Dosage: 12.5 ?G, QH
     Route: 062
     Dates: start: 201701, end: 20170122
  2. FENTANYL TRANSDERMAL SYSTEM [Suspect]
     Active Substance: FENTANYL
     Dosage: 25 ?G, UNK
     Route: 062
     Dates: start: 201701, end: 20170122

REACTIONS (1)
  - Drug ineffective [Recovered/Resolved]

NARRATIVE: CASE EVENT DATE: 201701
